FAERS Safety Report 5325012-5 (Version None)
Quarter: 2007Q2

REPORT INFORMATION
  Report Type: 
  Country: None (occurrence: None)
  Receive Date: 20070515
  Receipt Date: 20070511
  Transmission Date: 20071010
  Serious: Yes (Other)
  Sender: FDA-Public Use
  Company Number: TR-JNJFOC-20070502804

PATIENT
  Age: 5 Year
  Sex: Male

DRUGS (3)
  1. RISPERIDONE [Suspect]
     Indication: OPPOSITIONAL DEFIANT DISORDER
  2. RISPERIDONE [Suspect]
     Indication: ATTENTION DEFICIT/HYPERACTIVITY DISORDER
  3. METHYLPHENIDATE HCL [Interacting]
     Indication: ATTENTION DEFICIT/HYPERACTIVITY DISORDER

REACTIONS (5)
  - AGGRESSION [None]
  - AGITATION [None]
  - DRUG INTERACTION [None]
  - HYPERVIGILANCE [None]
  - IRRITABILITY [None]
